FAERS Safety Report 17370223 (Version 2)
Quarter: 2020Q1

REPORT INFORMATION
  Report Type: Spontaneous
  Country: UZ (occurrence: UZ)
  Receive Date: 20200205
  Receipt Date: 20200214
  Transmission Date: 20200409
  Serious: Yes (Hospitalization)
  Sender: FDA-Public Use
  Company Number: UZ-DRREDDYS-GPV/UZB/20/0119372

PATIENT
  Age: 54 Year
  Sex: Male
  Weight: 85 kg

DRUGS (11)
  1. CARVEDILOL. [Concomitant]
     Active Substance: CARVEDILOL
     Indication: CARDIAC FAILURE CHRONIC
  2. ASPARCAM [Concomitant]
     Indication: MYOCARDITIS
     Route: 048
  3. ASPARCAM [Concomitant]
     Indication: CARDIAC FAILURE CHRONIC
  4. TORSID [Concomitant]
     Indication: EFFUSION
  5. DIGOXIN. [Concomitant]
     Active Substance: DIGOXIN
     Indication: CARDIAC FAILURE CHRONIC
  6. CARVEDILOL. [Concomitant]
     Active Substance: CARVEDILOL
     Indication: MYOCARDITIS
     Dosage: 6/25 MG
     Route: 048
  7. DIGOXIN. [Concomitant]
     Active Substance: DIGOXIN
     Indication: MYOCARDITIS
     Route: 048
  8. PLAGRIL 75MG [Suspect]
     Active Substance: CLOPIDOGREL BISULFATE
     Indication: CARDIAC FAILURE CHRONIC
  9. TORSID [Concomitant]
     Indication: ESSENTIAL HYPERTENSION
     Route: 048
  10. TORSID [Concomitant]
     Indication: OEDEMA
  11. PLAGRIL 75MG [Suspect]
     Active Substance: CLOPIDOGREL BISULFATE
     Indication: MYOCARDITIS
     Route: 048

REACTIONS (3)
  - Coronary artery thrombosis [Recovered/Resolved]
  - General physical health deterioration [Recovered/Resolved]
  - Drug ineffective [Recovered/Resolved]

NARRATIVE: CASE EVENT DATE: 20200107
